FAERS Safety Report 7879910-9 (Version None)
Quarter: 2011Q4

REPORT INFORMATION
  Report Type: 
  Country: None (occurrence: None)
  Receive Date: 20111101
  Receipt Date: 20111027
  Transmission Date: 20120403
  Serious: Yes (Hospitalization, Other)
  Sender: FDA-Public Use
  Company Number: SE-PFIZER INC-2011263476

PATIENT
  Age: 84 Year
  Sex: Male

DRUGS (13)
  1. TOVIAZ [Concomitant]
     Dosage: UNK
  2. FERROUS SULFATE TAB [Concomitant]
     Dosage: 100 MG, UNK
  3. IMDUR [Concomitant]
     Dosage: UNK
  4. GLYTRIN [Concomitant]
     Dosage: UNK
  5. OMEPRAZOLE [Concomitant]
     Dosage: UNK
  6. METOPROLOL SUCCINATE [Concomitant]
     Dosage: UNK
  7. RAMIPRIL [Suspect]
     Indication: CARDIAC DISORDER
     Dosage: UNK
     Dates: end: 20110501
  8. LIPITOR [Concomitant]
     Dosage: UNK
  9. MOVIPREP [Concomitant]
     Dosage: UNK
  10. PROCREN [Concomitant]
     Dosage: UNK
  11. ASPIRIN [Concomitant]
     Dosage: UNK
  12. FUROSEMIDE [Concomitant]
     Dosage: UNK
  13. PLAVIX [Concomitant]
     Dosage: 75 MG, UNK

REACTIONS (1)
  - MYOCARDIAL INFARCTION [None]
